FAERS Safety Report 4586741-4 (Version None)
Quarter: 2005Q1

REPORT INFORMATION
  Report Type: 
  Country: None (occurrence: None)
  Receive Date: 20050217
  Receipt Date: 20050217
  Transmission Date: 20050727
  Serious: Yes (Hospitalization, Other)
  Sender: FDA-Public Use
  Company Number: None

PATIENT
  Age: 45 Year
  Sex: Female

DRUGS (6)
  1. CORRECTOL [Suspect]
     Indication: CONSTIPATION
     Dosage: ORAL
     Route: 048
  2. FEEN-A-MINT [Suspect]
     Indication: CONSTIPATION
  3. EX-LAX [Suspect]
     Indication: CONSTIPATION
  4. ALPRAZOLAM [Concomitant]
  5. ENALAPRIL [Concomitant]
  6. NADOLOL [Concomitant]

REACTIONS (19)
  - ADHESION [None]
  - ANAEMIA [None]
  - CARCINOEMBRYONIC ANTIGEN INCREASED [None]
  - CARDIOMEGALY [None]
  - CHOLELITHIASIS [None]
  - COLON CANCER METASTATIC [None]
  - DRUG DEPENDENCE [None]
  - ELECTROLYTE IMBALANCE [None]
  - HELICOBACTER PYLORI IDENTIFICATION TEST POSITIVE [None]
  - HYPERHIDROSIS [None]
  - INCISIONAL HERNIA [None]
  - INTESTINAL OBSTRUCTION [None]
  - LAXATIVE ABUSE [None]
  - LIVER FUNCTION TEST ABNORMAL [None]
  - MELANOSIS COLI [None]
  - METASTASES TO LIVER [None]
  - REFUSAL OF TREATMENT BY PATIENT [None]
  - RENAL FAILURE ACUTE [None]
  - TREATMENT NONCOMPLIANCE [None]
